FAERS Safety Report 13139191 (Version 6)
Quarter: 2017Q3

REPORT INFORMATION
  Report Type: Spontaneous
  Country: KR (occurrence: KR)
  Receive Date: 20170123
  Receipt Date: 20170801
  Transmission Date: 20171127
  Serious: Yes (Death, Hospitalization, Other)
  Sender: FDA-Public Use
  Company Number: KR-009507513-1701KOR008834

PATIENT
  Age: 62 Year
  Sex: Male
  Weight: 58.8 kg

DRUGS (27)
  1. ALIMTA [Concomitant]
     Active Substance: PEMETREXED DISODIUM
     Indication: NON-SMALL CELL LUNG CANCER
     Dosage: 830 MG, ONCE, CYCLE 1
     Route: 042
     Dates: start: 20160308, end: 20160308
  2. DEXA S [Concomitant]
     Indication: PROPHYLAXIS OF NAUSEA AND VOMITING
     Dosage: 5 MG, QID, STRENGTH: 5MG/ML
     Route: 042
     Dates: start: 20160229, end: 20160314
  3. MEDILAC DS [Concomitant]
     Indication: PROPHYLAXIS
     Dosage: 1 ENTERIC COATED CAPSULE, TID
     Route: 048
     Dates: start: 20160402, end: 20160415
  4. SYNATURA [Concomitant]
     Indication: UPPER RESPIRATORY TRACT INFECTION
     Dosage: 1 PK, BID
     Route: 048
     Dates: start: 20160321, end: 20160415
  5. MANNITOL. [Concomitant]
     Active Substance: MANNITOL
     Indication: PROPHYLAXIS
     Dosage: 70 MG, ONCE (CAPACITY 100 ML)
     Route: 042
     Dates: start: 20160331, end: 20160331
  6. MACPERAN [Concomitant]
     Active Substance: METOCLOPRAMIDE HYDROCHLORIDE
     Indication: PROPHYLAXIS
     Dosage: 2 TABLET, BID
     Route: 048
     Dates: start: 20160408, end: 20160415
  7. DEXAMETHASONE. [Concomitant]
     Active Substance: DEXAMETHASONE
     Indication: PROPHYLAXIS OF NAUSEA AND VOMITING
     Dosage: 4 MG, QD
     Route: 048
     Dates: start: 20160328, end: 20160410
  8. ALOXI [Concomitant]
     Active Substance: PALONOSETRON HYDROCHLORIDE
     Dosage: 0.25 MG, ONCE
     Route: 042
     Dates: start: 20160331, end: 20160331
  9. SAMA TANTUM GARGLE [Concomitant]
     Active Substance: BENZYDAMINE HYDROCHLORIDE
     Indication: PROPHYLAXIS
     Dosage: 1 BTL, QD (ROUTE: GARGLE)
     Route: 049
     Dates: start: 20160328, end: 20160411
  10. FOLIC ACID. [Concomitant]
     Active Substance: FOLIC ACID
     Indication: PROPHYLAXIS
     Dosage: 1 TABLET, QD
     Route: 048
     Dates: start: 20160229, end: 20160415
  11. HEPARIN [Concomitant]
     Active Substance: HEPARIN SODIUM
     Indication: PROPHYLAXIS
     Dosage: 1 ML, ONCE, STRENGTH: 25000IU/5ML, VIAL
     Route: 042
     Dates: start: 20160408, end: 20160408
  12. DUPHALAC [Concomitant]
     Active Substance: LACTULOSE
     Indication: CONSTIPATION
     Dosage: 15 ML, TID
     Route: 048
     Dates: start: 20160331, end: 20160415
  13. EMEND (FOSAPREPITANT DIMEGLUMINE) [Suspect]
     Active Substance: FOSAPREPITANT DIMEGLUMINE
     Dosage: 150 MG, ONCE
     Route: 042
     Dates: start: 20160331, end: 20160331
  14. DEXA S [Concomitant]
     Dosage: 12 MG, ONCE, STRENGTH: 5MG/ML
     Route: 042
     Dates: start: 20160331, end: 20160331
  15. NAITRAL [Concomitant]
     Indication: PROPHYLAXIS
     Dosage: 1 FTU, QD
     Route: 003
     Dates: start: 20160330, end: 20160415
  16. IRCODON [Concomitant]
     Active Substance: OXYCODONE HYDROCHLORIDE
     Indication: PAIN
     Dosage: 1 TABLET, QID
     Route: 048
     Dates: start: 20160402, end: 20160402
  17. CISPLATIN. [Concomitant]
     Active Substance: CISPLATIN
     Indication: NON-SMALL CELL LUNG CANCER
     Dosage: 83 MG, ONCE, CYCLE 1, STRENGTH: 10MG/20ML
     Route: 042
     Dates: start: 20160308, end: 20160308
  18. DREAMPHARMA SODIUM FUSIDATE [Concomitant]
     Indication: PROPHYLAXIS
     Dosage: 1 FTU, QD
     Route: 003
     Dates: start: 20160330, end: 20160416
  19. EMEND (FOSAPREPITANT DIMEGLUMINE) [Suspect]
     Active Substance: FOSAPREPITANT DIMEGLUMINE
     Indication: PROPHYLAXIS OF NAUSEA AND VOMITING
     Dosage: 150 MG, ONCE
     Route: 042
     Dates: start: 20160308, end: 20160308
  20. CISPLATIN. [Concomitant]
     Active Substance: CISPLATIN
     Dosage: 66.4 MG, ONCE, CYCLE 2, STRENGTH: 10MG/20ML
     Route: 042
     Dates: start: 20160331, end: 20160331
  21. ALIMTA [Concomitant]
     Active Substance: PEMETREXED DISODIUM
     Dosage: 830 MG, ONCE, CYCLE 2
     Route: 042
     Dates: start: 20160331, end: 20160331
  22. DEXA S [Concomitant]
     Dosage: 8 MG, ONCE, STRENGTH: 5MG/ML
     Route: 042
     Dates: start: 20160401, end: 20160401
  23. ALOXI [Concomitant]
     Active Substance: PALONOSETRON HYDROCHLORIDE
     Indication: PREMEDICATION
     Dosage: 0.25 MG, ONCE
     Route: 042
     Dates: start: 20160308, end: 20160309
  24. ALBIS [Concomitant]
     Active Substance: BISMUTH SUBCITRATE\RANITIDINE HYDROCHLORIDE\SUCRALFATE
     Indication: PROPHYLAXIS
     Dosage: 1 TABLET, BID
     Route: 048
     Dates: start: 20160328, end: 20160416
  25. DUROGESIC [Concomitant]
     Active Substance: FENTANYL
     Indication: PAIN
     Dosage: 1 PK, QD, D-TRANS PATCH 25 MCG/HX10.5 CM2
     Route: 003
     Dates: start: 20160224, end: 20160415
  26. GASLON [Concomitant]
     Active Substance: IRSOGLADINE MALEATE
     Indication: PROPHYLAXIS
     Dosage: 1 TABLET, QD
     Route: 048
     Dates: start: 20160321, end: 20160328
  27. MEGACE F [Concomitant]
     Indication: PROPHYLAXIS
     Dosage: 1 PK, QD
     Route: 048
     Dates: start: 20160321, end: 20160415

REACTIONS (3)
  - Stomatitis [Not Recovered/Not Resolved]
  - Asthenia [Not Recovered/Not Resolved]
  - Non-small cell lung cancer [Fatal]

NARRATIVE: CASE EVENT DATE: 20160408
